FAERS Safety Report 4297959-2 (Version None)
Quarter: 2004Q1

REPORT INFORMATION
  Report Type: 
  Country: None (occurrence: None)
  Receive Date: 20040218
  Receipt Date: 20001207
  Transmission Date: 20041129
  Serious: Yes (Hospitalization, Other)
  Sender: FDA-Public Use
  Company Number: US-BRISTOL-MYERS SQUIBB COMPANY-10636892

PATIENT
  Age: 40 Year
  Sex: Female

DRUGS (7)
  1. STADOL [Suspect]
     Indication: MIGRAINE
     Route: 045
     Dates: start: 19800101, end: 19990101
  2. LORCET-HD [Concomitant]
  3. TYLENOL W/ CODEINE NO. 3 [Concomitant]
  4. ANSAID [Concomitant]
  5. CARISOPRODOL [Concomitant]
  6. ELAVIL [Concomitant]
  7. BUSPAR [Concomitant]

REACTIONS (1)
  - DEPENDENCE [None]
